FAERS Safety Report 7616717-1 (Version None)
Quarter: 2011Q3

REPORT INFORMATION
  Report Type: 
  Country: None (occurrence: None)
  Receive Date: 20110718
  Receipt Date: 20110712
  Transmission Date: 20111222
  Serious: Yes (Other)
  Sender: FDA-Public Use
  Company Number: US-BIOGENIDEC-2010BI020868

PATIENT
  Age: 61 Year
  Sex: Female
  Weight: 76 kg

DRUGS (3)
  1. PROVIGIL [Concomitant]
  2. TYSABRI [Suspect]
     Route: 042
     Dates: start: 20100901
  3. TYSABRI [Suspect]
     Indication: MULTIPLE SCLEROSIS
     Route: 042
     Dates: start: 20100125, end: 20100601

REACTIONS (4)
  - INFLUENZA [None]
  - HYPOACUSIS [None]
  - OROPHARYNGEAL CANCER RECURRENT [None]
  - DIABETES MELLITUS [None]
